FAERS Safety Report 10247367 (Version 1)
Quarter: 2014Q2

REPORT INFORMATION
  Report Type: Spontaneous
  Country: IN (occurrence: None)
  Receive Date: 20140617
  Receipt Date: 20140617
  Transmission Date: 20141212
  Serious: Yes (Life-Threatening)
  Sender: FDA-Public Use
  Company Number: IMP_07679_2014

PATIENT
  Age: 55 Year
  Sex: Male

DRUGS (2)
  1. BUPROPION [Suspect]
     Indication: DEPRESSION
     Dosage: DF 150 MG/DAY TO 300 MG/DAY, 300 MG QD, [GRADUALLY TAPERED OFF]
  2. WARFARIN [Suspect]
     Indication: DEEP VEIN THROMBOSIS
     Dosage: DF A FEW WEEKS UNTIL NOT CONTINUING

REACTIONS (2)
  - International normalised ratio increased [None]
  - Drug interaction [None]
